FAERS Safety Report 22598611 (Version 1)
Quarter: 2023Q2

REPORT INFORMATION
  Report Type: Spontaneous
  Country: US (occurrence: US)
  Receive Date: 20230614
  Receipt Date: 20230614
  Transmission Date: 20230722
  Serious: Yes (Hospitalization, Other)
  Sender: FDA-Public Use
  Company Number: US-BEH-2023159758

PATIENT
  Age: 54 Year
  Sex: Male

DRUGS (1)
  1. HIZENTRA [Suspect]
     Active Substance: HUMAN IMMUNOGLOBULIN G
     Indication: Hypogammaglobulinaemia
     Dosage: 30 GRAM, QOW
     Route: 058
     Dates: start: 202003

REACTIONS (3)
  - Cholecystectomy [Unknown]
  - Illness [Unknown]
  - Infection [Unknown]

NARRATIVE: CASE EVENT DATE: 20230501
